FAERS Safety Report 16440385 (Version 3)
Quarter: 2019Q2

REPORT INFORMATION
  Report Type: Spontaneous
  Country: US (occurrence: US)
  Receive Date: 20190617
  Receipt Date: 20190629
  Transmission Date: 20190711
  Serious: No
  Sender: FDA-Public Use
  Company Number: PHEH2019US025093

PATIENT
  Age: 59 Year
  Sex: Female

DRUGS (1)
  1. TREPROSTINIL. [Suspect]
     Active Substance: TREPROSTINIL
     Indication: PULMONARY ARTERIAL HYPERTENSION
     Dosage: 60.5 NG/KG/MIN
     Route: 042
     Dates: start: 20190516

REACTIONS (10)
  - Arthralgia [Unknown]
  - Dyspnoea [Unknown]
  - Flushing [Unknown]
  - Hyperhidrosis [Unknown]
  - Fatigue [Unknown]
  - Myalgia [Unknown]
  - Somnolence [Unknown]
  - Limb discomfort [Unknown]
  - Oxygen consumption increased [Unknown]
  - Headache [Unknown]

NARRATIVE: CASE EVENT DATE: 20190516
